FAERS Safety Report 23786871 (Version 1)
Quarter: 2024Q2

REPORT INFORMATION
  Report Type: Spontaneous
  Country: US (occurrence: US)
  Receive Date: 20240426
  Receipt Date: 20240426
  Transmission Date: 20240716
  Serious: Yes (Death, Other)
  Sender: FDA-Public Use
  Company Number: US-DRL-USA-LIT/USA/24/0006143

PATIENT
  Age: 64 Year
  Sex: Male

DRUGS (9)
  1. MELPHALAN [Suspect]
     Active Substance: MELPHALAN
     Indication: Plasma cell myeloma
  2. MOZOBIL [Concomitant]
     Active Substance: PLERIXAFOR
     Indication: Plasma cell myeloma
  3. DEXAMETHASONE [Concomitant]
     Active Substance: DEXAMETHASONE
     Indication: Plasma cell myeloma
  4. REVLIMID [Concomitant]
     Active Substance: LENALIDOMIDE
     Indication: Plasma cell myeloma
  5. TOCILIZUMAB [Concomitant]
     Active Substance: TOCILIZUMAB
     Indication: Engraftment syndrome
  6. VANCOMYCIN [Concomitant]
     Active Substance: VANCOMYCIN
     Indication: Staphylococcal infection
  7. VELCADE [Concomitant]
     Active Substance: BORTEZOMIB
     Indication: Plasma cell myeloma
  8. FILGRASTIM [Concomitant]
     Active Substance: FILGRASTIM
     Indication: Plasma cell myeloma
  9. ZOMETA [Concomitant]
     Active Substance: ZOLEDRONIC ACID
     Indication: Plasma cell myeloma

REACTIONS (5)
  - Multiple organ dysfunction syndrome [Fatal]
  - Venoocclusive liver disease [Fatal]
  - Engraftment syndrome [Fatal]
  - Staphylococcal skin infection [Unknown]
  - Graft versus host disease [Unknown]
